FAERS Safety Report 24135661 (Version 1)
Quarter: 2024Q3

REPORT INFORMATION
  Report Type: Spontaneous
  Country: AU (occurrence: AU)
  Receive Date: 20240725
  Receipt Date: 20240725
  Transmission Date: 20241017
  Serious: Yes (Other)
  Sender: ABBVIE
  Company Number: AU-ABBVIE-5851757

PATIENT
  Sex: Female

DRUGS (3)
  1. HUMIRA [Suspect]
     Active Substance: ADALIMUMAB
     Indication: Product used for unknown indication
     Route: 058
  2. METHOTREXATE [Concomitant]
     Active Substance: METHOTREXATE
     Indication: Product used for unknown indication
  3. TREMFYA [Suspect]
     Active Substance: GUSELKUMAB
     Indication: Product used for unknown indication

REACTIONS (9)
  - Intestinal obstruction [Unknown]
  - Stress [Unknown]
  - Central nervous system lesion [Unknown]
  - Inflammatory marker increased [Unknown]
  - Oral herpes [Unknown]
  - Memory impairment [Unknown]
  - Colitis ulcerative [Unknown]
  - Condition aggravated [Unknown]
  - Learning disorder [Unknown]
